FAERS Safety Report 6389944-1 (Version None)
Quarter: 2009Q4

REPORT INFORMATION
  Report Type: 
  Country: None (occurrence: None)
  Receive Date: 20091006
  Receipt Date: 20090522
  Transmission Date: 20100525
  Serious: No
  Sender: FDA-Public Use
  Company Number: US-BRISTOL-MYERS SQUIBB COMPANY-14637615

PATIENT
  Sex: Female

DRUGS (4)
  1. AVAPRO [Suspect]
     Indication: BLOOD PRESSURE
  2. DIGOXIN [Suspect]
  3. FUROSEMIDE [Suspect]
  4. POTASSIUM CHLORIDE [Suspect]

REACTIONS (1)
  - DIZZINESS [None]
